FAERS Safety Report 6233967-X (Version None)
Quarter: 2009Q2

REPORT INFORMATION
  Report Type: 
  Country: None (occurrence: None)
  Receive Date: 20090616
  Receipt Date: 20090616
  Transmission Date: 20091009
  Serious: Yes (Other)
  Sender: FDA-Public Use
  Company Number: None

PATIENT
  Age: 57 Year
  Sex: Female
  Weight: 77.1115 kg

DRUGS (1)
  1. EFFEXOR XR [Suspect]
     Indication: DEPRESSION
     Dosage: 1 CAPSULE 1 DAILY PO
     Route: 048
     Dates: start: 20070113, end: 20090527

REACTIONS (5)
  - ANXIETY [None]
  - CONVULSION [None]
  - SCREAMING [None]
  - THINKING ABNORMAL [None]
  - TREMOR [None]
